FAERS Safety Report 13453560 (Version 1)
Quarter: 2017Q2

REPORT INFORMATION
  Report Type: Spontaneous
  Country: US (occurrence: US)
  Receive Date: 20170418
  Receipt Date: 20170418
  Transmission Date: 20170830
  Serious: No
  Sender: FDA-Public Use
  Company Number: US-ALLERGAN-1663076US

PATIENT
  Age: 76 Year
  Sex: Female

DRUGS (7)
  1. BIOTIN [Concomitant]
     Active Substance: BIOTIN
     Dosage: UNK UNK, QD
  2. VOLTAREN [Concomitant]
     Active Substance: DICLOFENAC SODIUM
     Indication: MUSCULOSKELETAL PAIN
     Dosage: UNK
     Route: 061
  3. EQUATE [Concomitant]
     Active Substance: UNSPECIFIED INGREDIENT
     Indication: CATARACT OPERATION
     Dosage: UNK UNK, PRN
     Route: 047
  4. LATISSE [Suspect]
     Active Substance: BIMATOPROST
     Dosage: 1 GTT, UNK
     Route: 061
  5. VITAMIN C [Concomitant]
     Active Substance: ASCORBIC ACID
     Indication: SUPPLEMENTATION THERAPY
     Dosage: UNK UNK, QD
     Route: 048
  6. LATISSE [Suspect]
     Active Substance: BIMATOPROST
     Indication: GROWTH OF EYELASHES
     Dosage: 2 GTT, QHS
     Route: 061
  7. VITAMIN D3 [Concomitant]
     Active Substance: CHOLECALCIFEROL
     Indication: SUPPLEMENTATION THERAPY
     Dosage: UNK UNK, QD
     Route: 048

REACTIONS (8)
  - Eyelids pruritus [Recovering/Resolving]
  - Eyelid oedema [Recovering/Resolving]
  - Eye pruritus [Recovering/Resolving]
  - Wrong technique in product usage process [Unknown]
  - Blepharal pigmentation [Recovering/Resolving]
  - Erythema of eyelid [Recovering/Resolving]
  - Eye irritation [Recovering/Resolving]
  - Inappropriate schedule of drug administration [Unknown]

NARRATIVE: CASE EVENT DATE: 201605
